FAERS Safety Report 10978608 (Version 1)
Quarter: 2015Q2

REPORT INFORMATION
  Report Type: Spontaneous
  Country: US (occurrence: US)
  Receive Date: 20150402
  Receipt Date: 20150402
  Transmission Date: 20150821
  Serious: No
  Sender: FDA-Public Use
  Company Number: US-009507513-1502USA007542

PATIENT
  Age: 60 Year
  Sex: Male

DRUGS (4)
  1. ATRIPLA [Suspect]
     Active Substance: EFAVIRENZ\EMTRICITABINE\TENOFOVIR DISOPROXIL FUMARATE
     Dosage: UNK, UNKNOWN
     Route: 048
  2. PEGINTRON [Suspect]
     Active Substance: PEGINTERFERON ALFA-2B
     Indication: HEPATITIS C
     Dosage: DOSE/FREQUENCY: UNSPECIFIED BY REPORTER/ ONCE PER WEEK
     Dates: start: 201410, end: 20141219
  3. REBETOL [Suspect]
     Active Substance: RIBAVIRIN
  4. RIBASPHERE [Suspect]
     Active Substance: RIBAVIRIN

REACTIONS (3)
  - Erythema [Not Recovered/Not Resolved]
  - Dry skin [Not Recovered/Not Resolved]
  - Pruritus [Not Recovered/Not Resolved]

NARRATIVE: CASE EVENT DATE: 20141226
